FAERS Safety Report 12986054 (Version 1)
Quarter: 2016Q4

REPORT INFORMATION
  Report Type: Report from Study
  Country: US (occurrence: US)
  Receive Date: 20161130
  Receipt Date: 20161130
  Transmission Date: 20170207
  Serious: Yes (Other)
  Sender: FDA-Public Use
  Company Number: US-ROCHE-1861869

PATIENT
  Age: 37 Year
  Sex: Female
  Weight: 66.5 kg

DRUGS (2)
  1. BEVACIZUMAB [Suspect]
     Active Substance: BEVACIZUMAB
     Indication: OVARIAN EPITHELIAL CANCER
     Dosage: VER 30-90 MINUTES ON DAY 1 (CYCLE REPEATED EVERY 21 DAYS FOR 16 COURSES
     Route: 042
     Dates: start: 20160428
  2. VELIPARIB [Suspect]
     Active Substance: VELIPARIB
     Indication: OVARIAN EPITHELIAL CANCER
     Dosage: TWICE A DAY ON DAYS 1-21 (CYCLE REPEATED EVERY 21 DAYS FOR 6 COURSES)
     Route: 048
     Dates: start: 20160407

REACTIONS (5)
  - White blood cell count decreased [Unknown]
  - Platelet count decreased [Unknown]
  - Anaemia [Unknown]
  - Lymphocyte count decreased [Unknown]
  - Neutrophil count decreased [Unknown]
